FAERS Safety Report 5449331-7 (Version None)
Quarter: 2007Q3

REPORT INFORMATION
  Report Type: 
  Country: None (occurrence: None)
  Receive Date: 20070911
  Receipt Date: 20070830
  Transmission Date: 20080115
  Serious: Yes (Other)
  Sender: FDA-Public Use
  Company Number: US-PFIZER INC-2007061526

PATIENT
  Sex: Female
  Weight: 79.4 kg

DRUGS (2)
  1. ZYVOX [Suspect]
     Indication: SKIN ULCER
     Route: 048
     Dates: start: 20070710, end: 20070720
  2. ZYVOX [Suspect]
     Indication: INFECTION PROPHYLAXIS

REACTIONS (14)
  - ANAEMIA [None]
  - ASTHENIA [None]
  - BLOOD PRESSURE DECREASED [None]
  - DIARRHOEA [None]
  - DRUG INEFFECTIVE [None]
  - DRY MOUTH [None]
  - FATIGUE [None]
  - FEELING ABNORMAL [None]
  - LIP DRY [None]
  - MALAISE [None]
  - NAUSEA [None]
  - SOMNOLENCE [None]
  - VOMITING [None]
  - VULVOVAGINAL DRYNESS [None]
